FAERS Safety Report 4846353-1 (Version None)
Quarter: 2005Q4

REPORT INFORMATION
  Report Type: 
  Country: None (occurrence: None)
  Receive Date: 20051125
  Receipt Date: 20051111
  Transmission Date: 20060501
  Serious: No
  Sender: FDA-Public Use
  Company Number: 2005152023

PATIENT
  Sex: Male

DRUGS (1)
  1. XALATAN [Suspect]
     Indication: ILL-DEFINED DISORDER

REACTIONS (1)
  - NO ADVERSE EFFECT [None]
